FAERS Safety Report 9278576 (Version 1)
Quarter: 2013Q2

REPORT INFORMATION
  Report Type: Spontaneous
  Country: PL (occurrence: PL)
  Receive Date: 20130508
  Receipt Date: 20130508
  Transmission Date: 20140414
  Serious: Yes (Other)
  Sender: FDA-Public Use
  Company Number: PHHY2013PL043502

PATIENT
  Sex: 0

DRUGS (10)
  1. CICLOSPORIN [Suspect]
     Indication: IMMUNOSUPPRESSION
     Dates: start: 199910
  2. CICLOSPORIN [Suspect]
     Dates: start: 200808
  3. CICLOSPORIN [Suspect]
     Dates: start: 201208
  4. AZATHIOPRINE [Suspect]
     Indication: IMMUNOSUPPRESSION
     Dosage: 100 MG, UNK
     Dates: start: 199910
  5. ENCORTON [Suspect]
     Indication: IMMUNOSUPPRESSION
     Dates: start: 199910
  6. ENCORTON [Suspect]
     Dates: start: 200808
  7. ENCORTON [Suspect]
     Dates: start: 201208
  8. ENALAPRIL [Concomitant]
     Indication: HYPERTENSION
  9. TICLOPIDINE [Concomitant]
     Indication: HYPERTENSION
     Dosage: 25 MG, UNK
  10. EPREX [Concomitant]
     Indication: HYPERTENSION
     Dosage: 6000 U, QW

REACTIONS (12)
  - Lymphocele [Unknown]
  - Renal cyst [Unknown]
  - Eccrine carcinoma [Unknown]
  - Cytomegalovirus infection [Unknown]
  - Urinary tract infection [Unknown]
  - Proteus infection [Unknown]
  - Enterococcal infection [Unknown]
  - Enterobacter infection [Unknown]
  - Kidney transplant rejection [Unknown]
  - Exercise tolerance decreased [Unknown]
  - Skin lesion [Unknown]
  - Transaminases increased [Unknown]
